FAERS Safety Report 18900359 (Version 1)
Quarter: 2021Q1

REPORT INFORMATION
  Report Type: Not Available
  Country: US (occurrence: US)
  Receive Date: 20210217
  Receipt Date: 20210217
  Transmission Date: 20210420
  Serious: No
  Sender: FDA-Public Use
  Company Number: US-NEUROCRINE BIOSCIENCES INC.-2021NBI00569

PATIENT
  Age: 78 Year
  Sex: Female

DRUGS (11)
  1. TAMSULOSIN [Concomitant]
     Active Substance: TAMSULOSIN
  2. ASPIRIN. [Concomitant]
     Active Substance: ASPIRIN
  3. DULOXETINE. [Concomitant]
     Active Substance: DULOXETINE
  4. METOPROLOL. [Concomitant]
     Active Substance: METOPROLOL
  5. PANTOPRAZOLE [Concomitant]
     Active Substance: PANTOPRAZOLE
  6. DONEPEZIL. [Concomitant]
     Active Substance: DONEPEZIL
  7. ATORVASTATIN [Concomitant]
     Active Substance: ATORVASTATIN
  8. INGREZZA [Suspect]
     Active Substance: VALBENAZINE
     Indication: TARDIVE DYSKINESIA
     Route: 048
     Dates: start: 202012
  9. BUPROPION. [Concomitant]
     Active Substance: BUPROPION
  10. QUETIAPINE. [Concomitant]
     Active Substance: QUETIAPINE
  11. LEVOTHYROXINE. [Concomitant]
     Active Substance: LEVOTHYROXINE

REACTIONS (1)
  - COVID-19 [Unknown]
